FAERS Safety Report 5799259-8 (Version None)
Quarter: 2008Q3

REPORT INFORMATION
  Report Type: 
  Country: None (occurrence: None)
  Receive Date: 20080701
  Receipt Date: 20080624
  Transmission Date: 20090109
  Serious: Yes (Other)
  Sender: FDA-Public Use
  Company Number: 2008016605

PATIENT
  Age: 3 Year
  Sex: Female
  Weight: 11.3399 kg

DRUGS (1)
  1. ARTHRITIS FORMULA BENGAY (MENTHOL, METHYL SALICYLATE) [Suspect]
     Dosage: OPHTHALMIC
     Route: 047

REACTIONS (3)
  - ACCIDENTAL DRUG INTAKE BY CHILD [None]
  - CRYING [None]
  - EYE IRRITATION [None]
